FAERS Safety Report 13810374 (Version 1)
Quarter: 2017Q3

REPORT INFORMATION
  Report Type: Spontaneous
  Country: US (occurrence: US)
  Receive Date: 20170728
  Receipt Date: 20170728
  Transmission Date: 20171127
  Serious: No
  Sender: FDA-Public Use
  Company Number: US-B.I. PHARMACEUTICALS,INC./RIDGEFIELD-2017-BI-041626

PATIENT
  Age: 79 Year
  Sex: Male

DRUGS (2)
  1. LOSARTAN. [Concomitant]
     Active Substance: LOSARTAN
     Indication: HYPERTENSION
     Dosage: 1 TABLET 1 TIME DAILY;  FORM STRENGTH: 25 MG; FORMULATION: TABLET
     Route: 048
  2. PRADAXA [Suspect]
     Active Substance: DABIGATRAN ETEXILATE MESYLATE
     Indication: ATRIAL FIBRILLATION
     Dosage: 1 CAPSULE BID;  FORM STRENGTH: 150 MG; FORMULATION: CAPSULE? ADMINISTRATION CORRECT? YES ?ACTION(S)
     Route: 048
     Dates: start: 2015

REACTIONS (1)
  - Arthralgia [Not Recovered/Not Resolved]

NARRATIVE: CASE EVENT DATE: 201706
